FAERS Safety Report 5787427-0 (Version None)
Quarter: 2008Q2

REPORT INFORMATION
  Report Type: 
  Country: None (occurrence: None)
  Receive Date: 20080625
  Receipt Date: 20080623
  Transmission Date: 20081010
  Serious: Yes (Life-Threatening, Hospitalization)
  Sender: FDA-Public Use
  Company Number: JP-ASTRAZENECA-2008AP03555

PATIENT
  Age: 27749 Day
  Sex: Female
  Weight: 41 kg

DRUGS (10)
  1. OMEPRAL [Suspect]
     Indication: PROPHYLAXIS AGAINST GASTROINTESTINAL ULCER
     Route: 048
     Dates: start: 20070921, end: 20080502
  2. TIENAM [Suspect]
     Indication: PNEUMONIA
     Route: 041
     Dates: start: 20080419, end: 20080425
  3. TIENAM [Suspect]
     Route: 041
     Dates: start: 20080504
  4. GASMOTIN [Suspect]
     Indication: GASTROINTESTINAL DISORDER
     Route: 048
     Dates: start: 20080421, end: 20080502
  5. ISCOTIN [Suspect]
     Indication: PULMONARY TUBERCULOSIS
     Route: 048
     Dates: start: 20080423, end: 20080502
  6. FOSAMAC 5MG [Concomitant]
     Indication: OSTEOPOROSIS
     Route: 048
     Dates: start: 20070421, end: 20080502
  7. ASPIRIN [Concomitant]
     Indication: MYOCARDIAL INFARCTION
     Route: 048
     Dates: start: 20070921, end: 20080419
  8. NU-LOTAN [Concomitant]
     Indication: CARDIAC FAILURE
     Route: 048
     Dates: start: 20071212, end: 20080502
  9. PREDONINE [Concomitant]
     Indication: GLOMERULONEPHRITIS RAPIDLY PROGRESSIVE
     Route: 048
     Dates: start: 20080421, end: 20080504
  10. ACINON [Concomitant]
     Indication: GASTROINTESTINAL DISORDER
     Route: 048
     Dates: start: 20080421, end: 20080502

REACTIONS (3)
  - DISSEMINATED INTRAVASCULAR COAGULATION [None]
  - HEPATIC FAILURE [None]
  - RENAL FAILURE [None]
